FAERS Safety Report 21383856 (Version 1)
Quarter: 2022Q3

REPORT INFORMATION
  Report Type: Spontaneous
  Country: DE (occurrence: DE)
  Receive Date: 20220928
  Receipt Date: 20220928
  Transmission Date: 20221026
  Serious: Yes (Hospitalization)
  Sender: FDA-Public Use
  Company Number: DE-ADRED-05739-01

PATIENT
  Age: 67 Year
  Sex: Male
  Weight: 80 kg

DRUGS (17)
  1. PEMETREXED [Suspect]
     Active Substance: PEMETREXED
     Indication: Product used for unknown indication
     Dosage: 75, ACCORDING TO SCHEME
     Route: 065
  2. CISPLATIN [Suspect]
     Active Substance: CISPLATIN
     Indication: Product used for unknown indication
     Dosage: 75, ACCORDING TO SCHEME
     Route: 065
  3. ZOLEDRONIC ACID [Suspect]
     Active Substance: ZOLEDRONIC ACID
     Indication: Product used for unknown indication
     Dosage: ACCORDING TO SCHEME, ZOLEDRONSAURE
     Route: 065
  4. DEXAMETHASONE [Concomitant]
     Active Substance: DEXAMETHASONE
     Indication: Product used for unknown indication
     Dosage: 2 DOSAGE FORMS DAILY; 4 MG, 1-0-1-0, UNIT DOSE : 1 DF , FREQUENCY : BD
  5. glycopyrronium bromide/indacaterol [Concomitant]
     Indication: Product used for unknown indication
     Dosage: 1 DOSAGE FORMS DAILY; 62.55|110 UG, 1-0-0-0, UNIT DOSE : 1 DF , FREQUENCY : OD
  6. METAMIZOL [Concomitant]
     Active Substance: METAMIZOLE SODIUM
     Indication: Product used for unknown indication
     Dosage: 750 MG, REQUIREMENT, DROPS
  7. eisen(ii) [Concomitant]
     Indication: Product used for unknown indication
     Dosage: 2 DOSAGE FORMS DAILY; 50 MG, 1-0-1-0, CAPSULES, UNIT DOSE : 1 DF , FREQUENCY : BD
  8. CALCIUM CARBONATE\CALCIUM LACTATE GLUCONATE [Concomitant]
     Active Substance: CALCIUM CARBONATE\CALCIUM LACTATE GLUCONATE
     Indication: Product used for unknown indication
     Dosage: 1 DOSAGE FORMS DAILY; 300|2945.15 MG, 0-1-0-0,CALCIUMCARBONAT/CALCIUMGLUCONAT-CALCIUMLACTAT-GEMISCH,
  9. PANTOPRAZOLE SODIUM [Concomitant]
     Active Substance: PANTOPRAZOLE SODIUM
     Indication: Product used for unknown indication
     Dosage: 2 DOSAGE FORMS DAILY; 40 MG, 1-0-1-0, EXTENDED-RELEASE TABLETS, UNIT DOSE : 1 DF , FREQUENCY : BD
  10. FOLIC ACID [Concomitant]
     Active Substance: FOLIC ACID
     Indication: Product used for unknown indication
     Dosage: 13 DOSAGE FORMS DAILY; 0.4 MG, 13-0-0-0, TABLET, FOLSAURE, UNIT DOSE : 13 DF , FREQUENCY : OD
  11. TAMSULOSIN [Concomitant]
     Active Substance: TAMSULOSIN
     Indication: Product used for unknown indication
     Dosage: 1 DOSAGE FORMS DAILY; 0.4 MG, 1-0-0-0, SUSTAINED-RELEASE CAPSULES, UNIT DOSE : 1 DF , FREQUENCY : OD
  12. ENOXAPARIN [Concomitant]
     Active Substance: ENOXAPARIN
     Indication: Product used for unknown indication
     Dosage: 2 DOSAGE FORMS DAILY; 80 MG, 1-0-1-0, PRE-FILLED SYRINGES, UNIT DOSE : 1 DF , FREQUENCY : BD
  13. METOCLOPRAMIDE [Concomitant]
     Active Substance: METOCLOPRAMIDE
     Indication: Product used for unknown indication
     Dosage: 3 DOSAGE FORMS DAILY; 10 MG, 1-1-1-0, UNIT DOSE : 1 DF , FREQUENCY : 3 TIMES A DAY
  14. SODIUM PICOSULFATE [Concomitant]
     Active Substance: SODIUM PICOSULFATE
     Indication: Product used for unknown indication
     Dosage: 1 DOSAGE FORMS DAILY; 5 MG, 0-1-0-0, DROPS, NATRIUMPICOSULFAT, UNIT DOSE : 1 DF , FREQUENCY : OD
  15. Cyanocobalamin (Vitamin B12) [Concomitant]
     Indication: Product used for unknown indication
     Dosage: 1 DOSAGE FORMS DAILY; 1 MG, 0-1-0-0, UNIT DOSE : 1 DF , FREQUENCY : OD
  16. CHOLECALCIFEROL [Concomitant]
     Active Substance: CHOLECALCIFEROL
     Indication: Product used for unknown indication
     Dosage: 2 DOSAGE FORMS DAILY; 1000 IE, 2-0-0-0, UNIT DOSE : 2 DF , FREQUENCY : OD
  17. LACTULOSE [Concomitant]
     Active Substance: LACTULOSE
     Indication: Product used for unknown indication
     Dosage: 1 DOSAGE FORMS DAILY; 6.670 G, 0-1-0-0, UNIT DOSE : 1 DF , FREQUENCY : OD

REACTIONS (7)
  - Muscular weakness [Unknown]
  - Weight decreased [Unknown]
  - Anaemia [Unknown]
  - General physical health deterioration [Unknown]
  - Nausea [Unknown]
  - Dyspnoea [Unknown]
  - Constipation [Unknown]
